FAERS Safety Report 12247328 (Version 1)
Quarter: 2016Q2

REPORT INFORMATION
  Report Type: Spontaneous
  Country: US (occurrence: US)
  Receive Date: 20160407
  Receipt Date: 20160407
  Transmission Date: 20160815
  Serious: No
  Sender: FDA-Public Use
  Company Number: US-ELI_LILLY_AND_COMPANY-US201603005368

PATIENT
  Sex: Female

DRUGS (4)
  1. HUMALOG [Suspect]
     Active Substance: INSULIN LISPRO
     Dosage: 15 U, EACH EVENING
     Dates: start: 201506
  2. HUMALOG [Suspect]
     Active Substance: INSULIN LISPRO
     Dosage: 12 U, QD
     Dates: start: 201506
  3. LANTUS [Concomitant]
     Active Substance: INSULIN GLARGINE
     Indication: PRODUCT USED FOR UNKNOWN INDICATION
     Dosage: 30 U, EACH EVENING
     Route: 065
  4. HUMALOG [Suspect]
     Active Substance: INSULIN LISPRO
     Indication: DIABETES MELLITUS
     Dosage: 12 U, EACH MORNING
     Route: 065
     Dates: start: 201506

REACTIONS (1)
  - Underdose [Unknown]
